FAERS Safety Report 8736700 (Version 2)
Quarter: 2012Q4

REPORT INFORMATION
  Report Type: Spontaneous
  Country: FR (occurrence: None)
  Receive Date: 20120803
  Receipt Date: 20120821
  Transmission Date: 20130627
  Serious: Yes (Other)
  Sender: FDA-Public Use
  Company Number: 1364964

PATIENT
  Age: 57 Year
  Sex: Female
  Weight: 96 kg

DRUGS (2)
  1. NOREPINEPHRINE BITARTRATE [Suspect]
     Indication: PRODUCT USED FOR UNKNOWN INDICATION
     Dosage: INTRAVENOUS DRIP
     Route: 041
  2. ISOTONIC SODIUM CHLORIDE SOLUTION [Concomitant]

REACTIONS (5)
  - Blood pressure systolic increased [None]
  - Tachycardia [None]
  - Heart rate increased [None]
  - Lung disorder [None]
  - Renal failure [None]
